FAERS Safety Report 5084601-6 (Version None)
Quarter: 2006Q3

REPORT INFORMATION
  Report Type: 
  Country: None (occurrence: None)
  Receive Date: 20060821
  Receipt Date: 20060814
  Transmission Date: 20061208
  Serious: Yes (Other)
  Sender: FDA-Public Use
  Company Number: 2006UW16137

PATIENT
  Age: 21 Year
  Sex: Female
  Weight: 52.6 kg

DRUGS (4)
  1. ZOLADEX [Suspect]
     Indication: ENDOMETRIOSIS
     Route: 058
     Dates: start: 20060811
  2. ZOLOFT [Concomitant]
  3. LORATADINE [Concomitant]
  4. LORTAB [Concomitant]

REACTIONS (4)
  - DRUG ADMINISTRATION ERROR [None]
  - INJECTION SITE PAIN [None]
  - INJECTION SITE REACTION [None]
  - WRONG TECHNIQUE IN DRUG USAGE PROCESS [None]
